FAERS Safety Report 13902379 (Version 1)
Quarter: 2017Q3

REPORT INFORMATION
  Report Type: Spontaneous
  Country: US (occurrence: US)
  Receive Date: 20170824
  Receipt Date: 20170824
  Transmission Date: 20171127
  Serious: No
  Sender: FDA-Public Use
  Company Number: US-ROCHE-751899

PATIENT
  Sex: Female
  Weight: 64.4 kg

DRUGS (1)
  1. HERCEPTIN [Suspect]
     Active Substance: TRASTUZUMAB
     Indication: INFLAMMATORY CARCINOMA OF THE BREAST
     Dosage: THERAPY START DATE : 10 YEARS AGO
     Route: 042

REACTIONS (1)
  - Malignant neoplasm progression [Unknown]
